FAERS Safety Report 10360023 (Version 2)
Quarter: 2014Q3

REPORT INFORMATION
  Report Type: Spontaneous
  Country: US (occurrence: US)
  Receive Date: 20140804
  Receipt Date: 20140804
  Transmission Date: 20150326
  Serious: Yes (Hospitalization)
  Sender: FDA-Public Use
  Company Number: US-JNJFOC-20140620851

PATIENT
  Age: 75 Year
  Sex: Male
  Weight: 87 kg

DRUGS (19)
  1. FISH OIL [Concomitant]
     Active Substance: FISH OIL
     Route: 048
     Dates: start: 20100311
  2. FLOMAX [Concomitant]
     Active Substance: TAMSULOSIN HYDROCHLORIDE
     Route: 048
     Dates: start: 20130904
  3. IMBRUVICA [Suspect]
     Active Substance: IBRUTINIB
     Indication: CHRONIC LYMPHOCYTIC LEUKAEMIA
     Route: 048
     Dates: start: 20131205, end: 20140404
  4. NIASPAN [Concomitant]
     Active Substance: NIACIN
     Route: 048
     Dates: start: 20100311
  5. PREVACID [Concomitant]
     Active Substance: LANSOPRAZOLE
     Route: 048
     Dates: start: 20100311
  6. CYCLOBENZAPRINE [Concomitant]
     Active Substance: CYCLOBENZAPRINE
     Indication: MUSCLE SPASMS
     Route: 048
     Dates: start: 20140604
  7. ALLOPURINOL. [Concomitant]
     Active Substance: ALLOPURINOL
     Route: 048
     Dates: start: 20131204
  8. SLOW RELEASE IRON [Concomitant]
     Route: 048
     Dates: start: 20131226
  9. TEMAZEPAM. [Concomitant]
     Active Substance: TEMAZEPAM
     Indication: SLEEP DISORDER
     Dosage: MAY REPEAT X 1 AFTER AN HOUR IF NO SLEEP
     Route: 048
     Dates: start: 20140514
  10. BACTRIM DS [Concomitant]
     Active Substance: SULFAMETHOXAZOLE\TRIMETHOPRIM
     Dosage: 800 MG - 160 MG TWICE DAILY MONDAY-WEDNESDAY-FRIDAY
     Route: 048
     Dates: start: 20140620
  11. IMMUNOGLOBULIN [Concomitant]
     Active Substance: HUMAN IMMUNOGLOBULIN G
     Route: 048
  12. IMBRUVICA [Suspect]
     Active Substance: IBRUTINIB
     Indication: CHRONIC LYMPHOCYTIC LEUKAEMIA
     Dosage: 1 CAPSULE PER DAY
     Route: 048
     Dates: start: 201405, end: 20140605
  13. MULTIVITAMINS [Concomitant]
     Active Substance: VITAMINS
     Dosage: 1 DF Q DAY
     Route: 048
     Dates: start: 2010
  14. POTASSIUM [Concomitant]
     Active Substance: POTASSIUM
     Route: 048
     Dates: start: 20140304
  15. TOPROL XL [Concomitant]
     Active Substance: METOPROLOL SUCCINATE
     Route: 048
     Dates: start: 20100311
  16. IMBRUVICA [Suspect]
     Active Substance: IBRUTINIB
     Indication: CHRONIC LYMPHOCYTIC LEUKAEMIA
     Route: 048
     Dates: start: 20140620
  17. ASPIRIN. [Concomitant]
     Active Substance: ASPIRIN
     Route: 048
     Dates: start: 20100311
  18. METOCLOPRAMIDE. [Concomitant]
     Active Substance: METOCLOPRAMIDE
     Dosage: 1 DF, AC AND QHS
     Route: 048
     Dates: start: 20131116
  19. POTASSIUM CHLORIDE. [Concomitant]
     Active Substance: POTASSIUM CHLORIDE
     Route: 048
     Dates: start: 20140425

REACTIONS (15)
  - Cellulitis [Unknown]
  - Hypokalaemia [Unknown]
  - Hyponatraemia [Recovered/Resolved]
  - Pneumonia bacterial [Unknown]
  - Pollakiuria [Unknown]
  - Dehydration [Recovered/Resolved]
  - Disease progression [Unknown]
  - Nausea [Unknown]
  - Systemic inflammatory response syndrome [Unknown]
  - Neutropenic sepsis [Unknown]
  - Upper respiratory tract infection [Unknown]
  - Hypocalcaemia [Unknown]
  - Pyrexia [Unknown]
  - Oedema [Unknown]
  - Bronchitis [Unknown]

NARRATIVE: CASE EVENT DATE: 201404
